FAERS Safety Report 20159915 (Version 2)
Quarter: 2022Q1

REPORT INFORMATION
  Report Type: Spontaneous
  Country: FR (occurrence: FR)
  Receive Date: 20211208
  Receipt Date: 20220308
  Transmission Date: 20220423
  Serious: Yes (Death)
  Sender: FDA-Public Use
  Company Number: None

PATIENT
  Age: 53 Year
  Sex: Male

DRUGS (7)
  1. GEMCITABINE [Suspect]
     Active Substance: GEMCITABINE
     Indication: Neoplasm malignant
     Dosage: 1650 MG, CYCLIC
     Route: 042
     Dates: start: 20210824, end: 20210831
  2. LANSOPRAZOLE [Suspect]
     Active Substance: LANSOPRAZOLE
     Indication: Product used for unknown indication
     Dosage: 30 MG, QD (NO CHNAGED)
     Route: 048
     Dates: start: 20210827, end: 20210915
  3. OXAZEPAM [Suspect]
     Active Substance: OXAZEPAM
     Indication: Agitation
     Dosage: 10 MG, QD (NO CHANGED)
     Route: 048
     Dates: start: 20210825, end: 20210914
  4. LOVENOX [Suspect]
     Active Substance: ENOXAPARIN SODIUM
     Indication: Thrombosis prophylaxis
     Dosage: 1 DOSAGE FORM, QD (4000 UI ANTI-XA/0,4 ML, SOLUTION INJECTABLE EN SERINGUE PRE-REMPLIE) (NO CHANGED)
     Route: 058
     Dates: start: 20210821, end: 20210917
  5. POLYETHYLENE GLYCOLS [Suspect]
     Active Substance: POLYETHYLENE GLYCOLS
     Indication: Constipation
     Dosage: 11.8 G, QD
     Route: 048
     Dates: start: 20210825, end: 20210906
  6. CISPLATIN [Suspect]
     Active Substance: CISPLATIN
     Indication: Neoplasm malignant
     Dosage: 75 MG/M2, CYCLIC
     Route: 042
     Dates: start: 20210824, end: 20210824
  7. BACLOFEN [Concomitant]
     Active Substance: BACLOFEN
     Indication: Product used for unknown indication
     Dosage: 10 MG (AS NECESSARY)
     Route: 048
     Dates: end: 20210917

REACTIONS (1)
  - Thrombotic microangiopathy [Fatal]

NARRATIVE: CASE EVENT DATE: 20210829
